FAERS Safety Report 4510378-6 (Version None)
Quarter: 2004Q4

REPORT INFORMATION
  Report Type: 
  Country: None (occurrence: None)
  Receive Date: 20041119
  Receipt Date: 20041101
  Transmission Date: 20050328
  Serious: Yes (Other)
  Sender: FDA-Public Use
  Company Number: DE_041114595

PATIENT
  Age: 71 Year
  Sex: Female

DRUGS (1)
  1. RALOXIFENE HCL [Suspect]

REACTIONS (2)
  - CEREBROVASCULAR ACCIDENT [None]
  - VENTRICULAR FIBRILLATION [None]
